FAERS Safety Report 4908763-3 (Version None)
Quarter: 2006Q1

REPORT INFORMATION
  Report Type: 
  Country: None (occurrence: None)
  Receive Date: 20060210
  Receipt Date: 20051114
  Transmission Date: 20060701
  Serious: No
  Sender: FDA-Public Use
  Company Number: US-GLAXOSMITHKLINE-A0582173A

PATIENT
  Age: 39 Year
  Sex: Female

DRUGS (2)
  1. PAROXETINE CR [Suspect]
     Indication: DEPRESSION
     Dosage: 37.5MG PER DAY
     Route: 048
  2. VITAMINS [Concomitant]

REACTIONS (7)
  - ANOREXIA [None]
  - DECREASED APPETITE [None]
  - ELEVATED MOOD [None]
  - HYPERVIGILANCE [None]
  - IRRITABILITY [None]
  - LETHARGY [None]
  - WEIGHT INCREASED [None]
